FAERS Safety Report 10697551 (Version 3)
Quarter: 2019Q3

REPORT INFORMATION
  Report Type: Spontaneous
  Country: US (occurrence: US)
  Receive Date: 20150108
  Receipt Date: 20190809
  Transmission Date: 20191004
  Serious: Yes (Other)
  Sender: FDA-Public Use
  Company Number: US-PFIZER INC-2015005483

PATIENT
  Age: 64 Year
  Sex: Female
  Weight: 58.51 kg

DRUGS (5)
  1. DILANTIN [Suspect]
     Active Substance: PHENYTOIN
     Dosage: 200 MG, 2X/DAY (2 100MG CAPSULES BY MOUTH TWICE DAILY)
     Route: 048
  2. KEPPRA [Concomitant]
     Active Substance: LEVETIRACETAM
     Dosage: UNK
     Dates: start: 2005
  3. VIMPAT [Concomitant]
     Active Substance: LACOSAMIDE
     Dosage: UNK
     Dates: start: 2010
  4. DILANTIN [Suspect]
     Active Substance: PHENYTOIN
     Indication: SEIZURE
     Dosage: 200 MG, 2X/DAY (2 100 MG AM/2 100 MG PM)
  5. XANAX [Concomitant]
     Active Substance: ALPRAZOLAM
     Dosage: UNK
     Dates: start: 2005

REACTIONS (5)
  - Fall [Not Recovered/Not Resolved]
  - Seizure [Not Recovered/Not Resolved]
  - Memory impairment [Not Recovered/Not Resolved]
  - Drug ineffective [Not Recovered/Not Resolved]
  - Clavicle fracture [Not Recovered/Not Resolved]

NARRATIVE: CASE EVENT DATE: 1974
